FAERS Safety Report 16359840 (Version 1)
Quarter: 2019Q2

REPORT INFORMATION
  Report Type: Spontaneous
  Country: CN (occurrence: CN)
  Receive Date: 20190528
  Receipt Date: 20190528
  Transmission Date: 20190711
  Serious: Yes (Other)
  Sender: FDA-Public Use
  Company Number: CN-BAXTER-2019BAX010268

PATIENT
  Age: 7 Year
  Sex: Male
  Weight: 31 kg

DRUGS (26)
  1. CYTOSAR [Suspect]
     Active Substance: CYTARABINE
     Indication: ACUTE LYMPHOCYTIC LEUKAEMIA
     Dosage: CYTARABINE FOR INJECTION (CYTOSAR) 0.035 G + DEXAMETHASONE 2.5 MG + 0.9 % NS 3ML
     Route: 037
     Dates: start: 20190419, end: 20190419
  2. DEXAMETHASONE SODIUM PHOSPHATE. [Suspect]
     Active Substance: DEXAMETHASONE SODIUM PHOSPHATE
     Dosage: DOSE RE-INTRODUCED, CYTARABINE (CYTOSAR) + DEXAMETHASONE INJECTION + 0.9 % NS
     Route: 037
  3. METHOTREXATE. [Suspect]
     Active Substance: METHOTREXATE
     Indication: ACUTE LYMPHOCYTIC LEUKAEMIA
     Dosage: METHOTREXATE FOR INJECTION 12.5 MG + DEXAMETHASONE ACETATE 2.5 MG + 0.9 % NS 3 ML
     Route: 037
     Dates: start: 20190419, end: 20190419
  4. CYTARABINE HYDROCHLORIDE [Suspect]
     Active Substance: CYTARABINE HYDROCHLORIDE
     Dosage: DOSE RE-INTRODUCED, CYTARABINE FOR INJECTION + 5 % GS
     Route: 041
  5. VINCRISTINE SULFATE. [Suspect]
     Active Substance: VINCRISTINE SULFATE
     Indication: ACUTE LYMPHOCYTIC LEUKAEMIA
     Dosage: VINCRISTINE FOR INJECTION 1.6 MG + 0.9 % NS 20 ML
     Route: 042
     Dates: start: 20190419, end: 20190419
  6. ENDOXAN [Suspect]
     Active Substance: CYCLOPHOSPHAMIDE
     Dosage: CYCLOPHOSPHAMIDE + 0.9 % NS, DOSE RE-INTRODUCED
     Route: 041
  7. DEXAMETHASONE SODIUM PHOSPHATE. [Suspect]
     Active Substance: DEXAMETHASONE SODIUM PHOSPHATE
     Indication: ACUTE LYMPHOCYTIC LEUKAEMIA
     Dosage: CYTARABINE (CYTOSAR) 0.035 G + DEXAMETHASONE INJECTION 2.5 MG + 0.9 % NS 3 ML
     Route: 037
     Dates: start: 20190419, end: 20190419
  8. AI YANG [PEGASPARGASE] [Suspect]
     Active Substance: PEGASPARGASE
     Indication: ACUTE LYMPHOCYTIC LEUKAEMIA
     Route: 030
     Dates: start: 20190419, end: 20190419
  9. DEXAMETHASONE ACETATE [Suspect]
     Active Substance: DEXAMETHASONE ACETATE
     Indication: ACUTE LYMPHOCYTIC LEUKAEMIA
     Dosage: METHOTREXATE FOR INJECTION 12.5 MG + DEXAMETHASONE ACETATE 2.5 MG + 0.9 % NS 3 ML
     Route: 037
     Dates: start: 20190419, end: 20190419
  10. ENDOXAN [Suspect]
     Active Substance: CYCLOPHOSPHAMIDE
     Indication: ACUTE LYMPHOCYTIC LEUKAEMIA
     Dosage: CYCLOPHOSPHAMIDE 1G + 0.9 % NS 250 ML
     Route: 041
     Dates: start: 20190419, end: 20190419
  11. 0.9% SODIUM CHLORIDE INJECTION [Suspect]
     Active Substance: SODIUM CHLORIDE
     Indication: MEDICATION DILUTION
     Dosage: CYCLOPHOSPHAMIDE 1G + 0.9 % NS 250 ML
     Route: 041
     Dates: start: 20190419, end: 20190419
  12. METHOTREXATE. [Suspect]
     Active Substance: METHOTREXATE
     Dosage: DOSE RE-INTRODUCED, METHOTREXATE FOR INJECTION + DEXAMETHASONE ACETATE + 0.9 % NS
     Route: 037
  13. VINCRISTINE SULFATE. [Suspect]
     Active Substance: VINCRISTINE SULFATE
     Dosage: DOSE RE-INTRODUCED, VINCRISTINE FOR INJECTION + 0.9 % NS
     Route: 042
  14. DEXAMETHASONE ACETATE [Suspect]
     Active Substance: DEXAMETHASONE ACETATE
     Dosage: METHOTREXATE FOR INJECTION + DEXAMETHASONE ACETATE + 0.9 % NS, DOSE RE-INTRODUCED
     Route: 037
  15. 0.9% SODIUM CHLORIDE INJECTION [Suspect]
     Active Substance: SODIUM CHLORIDE
     Dosage: CYCLOPHOSPHAMIDE + 0.9 % NS, DOSE RE-INTRODUCED
     Route: 041
  16. 0.9% SODIUM CHLORIDE INJECTION [Suspect]
     Active Substance: SODIUM CHLORIDE
     Dosage: CYTARABINE (CYTOSAR) + DEXAMETHASONE + 0.9 % NS, DOSE RE-INTRODUCED
     Route: 037
  17. 0.9% SODIUM CHLORIDE INJECTION [Suspect]
     Active Substance: SODIUM CHLORIDE
     Dosage: VINCRISTINE 1.6 MG + 0.9 % NS 20 ML
     Route: 042
     Dates: start: 20190419, end: 20190419
  18. CYTOSAR [Suspect]
     Active Substance: CYTARABINE
     Dosage: DOSE RE-INTRODUCED, CYTARABINE (CYTOSAR) + DEXAMETHASONE + 0.9 % NS
     Route: 037
  19. 0.9% SODIUM CHLORIDE INJECTION [Suspect]
     Active Substance: SODIUM CHLORIDE
     Dosage: METHOTREXATE + DEXAMETHASONE ACETATE + 0.9 % NS, DOSE RE-INTRODUCED
     Route: 037
  20. 0.9% SODIUM CHLORIDE INJECTION [Suspect]
     Active Substance: SODIUM CHLORIDE
     Dosage: VINCRISTINE + 0.9 % NS, DOSE RE-INTRODUCED
     Route: 042
  21. 0.9% SODIUM CHLORIDE INJECTION [Suspect]
     Active Substance: SODIUM CHLORIDE
     Dosage: METHOTREXATE 12.5 MG + DEXAMETHASONE ACETATE 2.5 MG + 0.9 % NS 3 ML
     Route: 037
     Dates: start: 20190419, end: 20190419
  22. 0.9% SODIUM CHLORIDE INJECTION [Suspect]
     Active Substance: SODIUM CHLORIDE
     Dosage: CYTARABINE (CYTOSAR) 0.035 G + DEXAMETHASONE 2.5 MG + 0.9 % NS 3 ML
     Route: 037
     Dates: start: 20190419, end: 20190419
  23. 5% GLUCOSE  INJECTION [Suspect]
     Active Substance: DEXTROSE
     Indication: MEDICATION DILUTION
     Dosage: CYTARABINE FOR INJECTION 0.05 G + 5 % GS 100 ML
     Route: 041
     Dates: start: 20190419, end: 20190426
  24. 5% GLUCOSE  INJECTION [Suspect]
     Active Substance: DEXTROSE
     Dosage: DOSE RE-INTRODUCED, CYTARABINE FOR INJECTION + 5 % GS
     Route: 041
  25. AI YANG [PEGASPARGASE] [Suspect]
     Active Substance: PEGASPARGASE
     Dosage: DOSE RE-INTRODUCED
     Route: 030
  26. CYTARABINE HYDROCHLORIDE [Suspect]
     Active Substance: CYTARABINE HYDROCHLORIDE
     Indication: ACUTE LYMPHOCYTIC LEUKAEMIA
     Dosage: CYTARABINE FOR INJECTION 0.05 G + 5 % GS 100 ML
     Route: 041
     Dates: start: 20190419, end: 20190426

REACTIONS (1)
  - Bone marrow failure [Recovering/Resolving]

NARRATIVE: CASE EVENT DATE: 20190429
